FAERS Safety Report 21280479 (Version 2)
Quarter: 2022Q3

REPORT INFORMATION
  Report Type: Report from Study
  Country: BR (occurrence: BR)
  Receive Date: 20220901
  Receipt Date: 20220916
  Transmission Date: 20221026
  Serious: Yes (Hospitalization, Other)
  Sender: FDA-Public Use
  Company Number: BR-NOVARTISPH-NVSC2022BR195982

PATIENT
  Age: 72 Year
  Sex: Female
  Weight: 101 kg

DRUGS (15)
  1. TRILEPTAL [Suspect]
     Active Substance: OXCARBAZEPINE
     Indication: Epilepsy
     Dosage: 300 MG, BID, STARTED MANY YEARS  AGO
     Route: 065
  2. TRILEPTAL [Suspect]
     Active Substance: OXCARBAZEPINE
     Indication: Seizure
     Dosage: 600 MG, BID (1 TABLET OF EVERY 12 HOURS )
     Route: 048
  3. TRILEPTAL [Suspect]
     Active Substance: OXCARBAZEPINE
     Dosage: 300 MG
     Route: 048
  4. PAROXETINE HYDROCHLORIDE [Concomitant]
     Active Substance: PAROXETINE HYDROCHLORIDE
     Indication: Syncope
     Dosage: 1 DOSAGE FORM, QD (STARTED FOR ABOUT 16 YEARS)
     Route: 048
  5. PURAN [Concomitant]
     Active Substance: LEVOTHYROXINE SODIUM
     Indication: Autoimmune thyroiditis
     Dosage: 1 DOSAGE FORM, QD (100) (STARTED FOR ABOUT 50 YEARS)
     Route: 048
  6. PURAN [Concomitant]
     Active Substance: LEVOTHYROXINE SODIUM
     Indication: Thyroid mass
  7. RAMIPRIL [Concomitant]
     Active Substance: RAMIPRIL
     Indication: Hypertension
     Dosage: 1 DOSAGE FORM, QD (STATED FOR ABOUT 2 WEEKS)
     Route: 048
  8. GABALION [Concomitant]
     Indication: Epilepsy
     Dosage: 1 DOSAGE FORM, BID (STATED FOR ABOUT 30 YEARS)
     Route: 048
  9. GABALION [Concomitant]
     Indication: Seizure
  10. ATENOLOL [Concomitant]
     Active Substance: ATENOLOL
     Indication: Hypertension
     Dosage: 1 DOSAGE FORM, QD (STATED FOR ABOUT 25 YEARS AGO)
     Route: 048
  11. VITAMIN C [Concomitant]
     Active Substance: ASCORBIC ACID
     Indication: Product used for unknown indication
     Dosage: 1 DOSAGE FORM, QD (STATED FOR ABOUT 30 YEARS)
     Route: 048
  12. OMEGA 3 [Concomitant]
     Active Substance: CAPSAICIN
     Indication: Product used for unknown indication
     Dosage: 1 DOSAGE FORM, BID (STATED FOR ABOUT 5 YEARS)
     Route: 048
  13. VITAMIN D [Concomitant]
     Active Substance: VITAMIN D NOS
     Indication: Product used for unknown indication
     Dosage: 1 DOSAGE FORM, QW (FOR ABOUT 2 YEARS)
     Route: 048
  14. MAGNESIUM CHLORIDE [Concomitant]
     Active Substance: MAGNESIUM CHLORIDE
     Indication: Product used for unknown indication
     Dosage: 1 DOSAGE FORM, TID (STATED FOR ABOUT 20 YEARS)
     Route: 048
  15. BETAHISTINE [Concomitant]
     Active Substance: BETAHISTINE
     Indication: Labyrinthitis
     Dosage: 1 DOSAGE FORM, TID (STATED FOR ABOUT 3/4 YEARS)
     Route: 048

REACTIONS (15)
  - Blood sodium decreased [Not Recovered/Not Resolved]
  - Seizure [Unknown]
  - Illness [Unknown]
  - Tachycardia [Unknown]
  - Malaise [Unknown]
  - Blood test abnormal [Unknown]
  - Aptyalism [Unknown]
  - Weight increased [Unknown]
  - Nausea [Unknown]
  - Decreased appetite [Unknown]
  - Headache [Unknown]
  - Hypertension [Unknown]
  - Dizziness [Unknown]
  - Asthenia [Unknown]
  - Drug ineffective [Unknown]

NARRATIVE: CASE EVENT DATE: 20220827
